FAERS Safety Report 9104261 (Version 2)
Quarter: 2013Q1

REPORT INFORMATION
  Report Type: Report from Study
  Country: DE (occurrence: DE)
  Receive Date: 20130219
  Receipt Date: 20130226
  Transmission Date: 20140127
  Serious: Yes (Death, Hospitalization, Disabling)
  Sender: FDA-Public Use
  Company Number: DE-ROCHE-1191689

PATIENT
  Age: 64 Year
  Sex: Female
  Weight: 74 kg

DRUGS (17)
  1. MYCOPHENOLATE MOFETIL [Suspect]
     Indication: IMMUNOSUPPRESSION
     Route: 065
     Dates: start: 20120928
  2. SIROLIMUS [Suspect]
     Indication: IMMUNOSUPPRESSION
     Route: 065
     Dates: start: 20120927, end: 20121123
  3. RITUXIMAB [Suspect]
     Indication: IMMUNOSUPPRESSION
     Route: 065
  4. ATG-FRESENIUS [Suspect]
     Indication: IMMUNOSUPPRESSION
     Route: 065
  5. TREOSULFAN [Suspect]
     Indication: PRODUCT USED FOR UNKNOWN INDICATION
     Dosage: 14 G/M2 FROM DAY 6 TO 4
     Route: 065
  6. FLUDARABINE [Suspect]
     Indication: PRODUCT USED FOR UNKNOWN INDICATION
     Dosage: FOR 24 HOUR FROM DAY 6 TO 2
     Route: 065
  7. ACICLOVIR [Concomitant]
     Route: 048
     Dates: end: 20121112
  8. VALCYTE [Concomitant]
     Indication: HERPES SIMPLEX
     Route: 048
     Dates: start: 20121112, end: 20121127
  9. SIMVASTATIN [Concomitant]
     Indication: HYPERCHOLESTEROLAEMIA
     Route: 048
  10. DIGIMERCK [Concomitant]
     Indication: CARDIAC FAILURE
     Route: 048
  11. FLUCONAZOLE [Concomitant]
     Route: 048
     Dates: end: 20121125
  12. NEXIUM [Concomitant]
     Route: 048
     Dates: start: 20121106
  13. PREDNISOLONE [Concomitant]
     Indication: GRAFT VERSUS HOST DISEASE
     Route: 048
     Dates: start: 20121102
  14. FENTANYL [Concomitant]
     Indication: PAIN
     Route: 062
  15. POTASSIUM [Concomitant]
     Indication: HYPOKALAEMIA
     Route: 048
     Dates: start: 20121109
  16. MAGNESIUM [Concomitant]
     Route: 065
     Dates: start: 20121112
  17. IDEOS [Concomitant]
     Route: 048
     Dates: start: 20121115

REACTIONS (1)
  - Toxic neuropathy [Fatal]
